FAERS Safety Report 15530243 (Version 3)
Quarter: 2018Q4

REPORT INFORMATION
  Report Type: Report from Study
  Country: BG (occurrence: BG)
  Receive Date: 20181018
  Receipt Date: 20181113
  Transmission Date: 20190205
  Serious: Yes (Life-Threatening, Other)
  Sender: FDA-Public Use
  Company Number: BG-BAYER-2018-160703

PATIENT
  Age: 63 Year
  Sex: Male

DRUGS (4)
  1. FURANTRIL [Concomitant]
  2. NEXAVAR [Suspect]
     Active Substance: SORAFENIB
     Indication: HEPATOCELLULAR CARCINOMA
     Dosage: 400 MG, BID
     Route: 048
     Dates: start: 20180816, end: 20181009
  3. SPIRONOLACTONE. [Concomitant]
     Active Substance: SPIRONOLACTONE
  4. CARSIL [Concomitant]
     Active Substance: DIETARY SUPPLEMENT\HERBALS\MILK THISTLE

REACTIONS (34)
  - Dysstasia [Not Recovered/Not Resolved]
  - Dyspnoea [Recovered/Resolved]
  - Yellow skin [None]
  - Blood creatinine increased [Not Recovered/Not Resolved]
  - Ascites [Recovered/Resolved]
  - Back pain [Not Recovered/Not Resolved]
  - Aspartate aminotransferase increased [None]
  - Asthenia [None]
  - Ascites [Recovered/Resolved]
  - Decreased appetite [Not Recovered/Not Resolved]
  - Blood albumin decreased [None]
  - Hepatocellular carcinoma [None]
  - General physical health deterioration [Not Recovered/Not Resolved]
  - Hypophagia [Not Recovered/Not Resolved]
  - Abdominal distension [Recovered/Resolved]
  - General physical health deterioration [None]
  - Dysstasia [None]
  - Abdominal pain [None]
  - Back pain [None]
  - Abdominal pain [Recovered/Resolved]
  - Abdominal pain [Not Recovered/Not Resolved]
  - Nausea [Recovered/Resolved]
  - Back pain [Recovered/Resolved]
  - Anuria [Not Recovered/Not Resolved]
  - Fluid intake reduced [Not Recovered/Not Resolved]
  - Pain [Not Recovered/Not Resolved]
  - Alanine aminotransferase increased [None]
  - Anuria [None]
  - Vomiting [Recovered/Resolved]
  - Asthenia [Not Recovered/Not Resolved]
  - Decreased appetite [None]
  - Yellow skin [Not Recovered/Not Resolved]
  - Blood creatinine increased [None]
  - Pain [None]

NARRATIVE: CASE EVENT DATE: 2018
